FAERS Safety Report 23715722 (Version 1)
Quarter: 2024Q2

REPORT INFORMATION
  Report Type: Other
  Country: US (occurrence: None)
  Receive Date: 20240408
  Receipt Date: 20240408
  Transmission Date: 20240715
  Serious: Yes (Hospitalization, Other)
  Sender: FDA-Public Use
  Company Number: US-ROCHE-3534684

PATIENT
  Age: 49 Year
  Sex: Female

DRUGS (1)
  1. OCREVUS [Suspect]
     Active Substance: OCRELIZUMAB
     Indication: Multiple sclerosis
     Dosage: DATE OF MOST RECENT INFUSION: 18/AUG/2021, 05/SEP/2023, 11/OCT/2023.
     Route: 065
     Dates: start: 2017

REACTIONS (3)
  - Thrombosis [Recovered/Resolved]
  - Pneumonia [Recovered/Resolved]
  - Illness [Unknown]
